FAERS Safety Report 20245611 (Version 1)
Quarter: 2021Q4

REPORT INFORMATION
  Report Type: Spontaneous
  Country: US (occurrence: None)
  Receive Date: 20211228
  Receipt Date: 20211228
  Transmission Date: 20220303
  Serious: No
  Sender: FDA-Public Use
  Company Number: None

PATIENT
  Age: 52 Year
  Sex: Female

DRUGS (3)
  1. METFORMIN [Suspect]
     Active Substance: METFORMIN HYDROCHLORIDE
  2. FORTAMET [Suspect]
     Active Substance: METFORMIN HYDROCHLORIDE
  3. GLUMETZA [Suspect]
     Active Substance: METFORMIN HYDROCHLORIDE

REACTIONS (2)
  - Urticaria [None]
  - Haemoglobin increased [None]

NARRATIVE: CASE EVENT DATE: 20211228
